FAERS Safety Report 21687731 (Version 1)
Quarter: 2022Q4

REPORT INFORMATION
  Report Type: Spontaneous
  Country: US (occurrence: US)
  Receive Date: 20221206
  Receipt Date: 20221206
  Transmission Date: 20230112
  Serious: Yes (Other)
  Sender: FDA-Public Use
  Company Number: US-MYLANLABS-2022M1135376

PATIENT
  Age: 4 Decade
  Sex: Female

DRUGS (10)
  1. PREDNISONE [Suspect]
     Active Substance: PREDNISONE
     Indication: Polychondritis
     Dosage: UNK, MINIMUM DOSAGE OF 20MG
     Route: 065
  2. PREDNISONE [Suspect]
     Active Substance: PREDNISONE
     Dosage: 10 MILLIGRAM, QD
     Route: 065
     Dates: start: 201904, end: 202003
  3. TACROLIMUS [Suspect]
     Active Substance: TACROLIMUS
     Indication: Polychondritis
     Dosage: UNK
     Route: 065
  4. METHOTREXATE [Suspect]
     Active Substance: METHOTREXATE
     Indication: Polychondritis
     Dosage: UNK
     Route: 048
  5. METHOTREXATE [Suspect]
     Active Substance: METHOTREXATE
     Indication: Polychondritis
     Dosage: UNK
     Route: 058
  6. METHOTREXATE [Suspect]
     Active Substance: METHOTREXATE
     Dosage: UNK, DOSE DECREASED
     Route: 058
  7. DAPSONE [Suspect]
     Active Substance: DAPSONE
     Indication: Polychondritis
     Dosage: UNK
     Route: 065
  8. MYCOPHENOLATE MOFETIL [Suspect]
     Active Substance: MYCOPHENOLATE MOFETIL
     Indication: Polychondritis
     Dosage: UNK
     Route: 065
     Dates: end: 201805
  9. TOFACITINIB [Concomitant]
     Active Substance: TOFACITINIB
     Indication: Polychondritis
     Dosage: 11 MILLIGRAM, FORMULATION: EXTENDED RELEASE
     Route: 048
     Dates: start: 201805, end: 201910
  10. VEDOLIZUMAB [Concomitant]
     Active Substance: VEDOLIZUMAB
     Indication: Crohn^s disease
     Dosage: UNK
     Route: 065
     Dates: start: 2014

REACTIONS (7)
  - Rebound effect [Unknown]
  - Polychondritis [Unknown]
  - Diarrhoea [Unknown]
  - Liver function test increased [Unknown]
  - Respiratory tract infection [Unknown]
  - Arthritis [Unknown]
  - Weight increased [Unknown]
